FAERS Safety Report 23094164 (Version 3)
Quarter: 2024Q1

REPORT INFORMATION
  Report Type: Spontaneous
  Country: US (occurrence: US)
  Receive Date: 20231023
  Receipt Date: 20240203
  Transmission Date: 20240410
  Serious: Yes (Other)
  Sender: FDA-Public Use
  Company Number: US-Ipsen Biopharmaceuticals, Inc.-2023-24082

PATIENT
  Age: 74 Year
  Sex: Male
  Weight: 84.82 kg

DRUGS (7)
  1. TAZVERIK [Suspect]
     Active Substance: TAZEMETOSTAT HYDROBROMIDE
     Indication: Follicular lymphoma
     Dosage: 400 MG, TWICE DAILY
     Route: 048
  2. CIALIS [Concomitant]
     Active Substance: TADALAFIL
     Route: 048
  3. DEXAMETHASONE [Concomitant]
     Active Substance: DEXAMETHASONE
     Route: 048
  4. MAGNESIUM OXIDE [Concomitant]
     Active Substance: MAGNESIUM OXIDE
     Route: 048
  5. RITUXAN [Concomitant]
     Active Substance: RITUXIMAB
     Dosage: SOLUTION
     Route: 042
  6. SANCUSO TRANSDERMAL PATCH [Concomitant]
     Dosage: TRANSDERMAL PATCH 3.1MG/24
  7. QC MENS MULTIVITAMINE [Concomitant]
     Route: 048

REACTIONS (3)
  - Pneumonia [Unknown]
  - Mass [Unknown]
  - Product dose omission issue [Unknown]
